FAERS Safety Report 5757670-5 (Version None)
Quarter: 2008Q2

REPORT INFORMATION
  Report Type: 
  Country: None (occurrence: None)
  Receive Date: 20080603
  Receipt Date: 20080529
  Transmission Date: 20081010
  Serious: Yes (Death)
  Sender: FDA-Public Use
  Company Number: AU-MERCK-0805AUS00197

PATIENT
  Age: 63 Year
  Sex: Male

DRUGS (5)
  1. CANCIDAS [Suspect]
     Indication: PROPHYLAXIS
     Route: 042
     Dates: start: 20051101
  2. VORICONAZOLE [Suspect]
     Route: 065
  3. MYCOPHENOLATE MOFETIL [Concomitant]
     Route: 065
  4. PREDNISONE [Concomitant]
     Route: 065
  5. TERBINAFINE [Concomitant]
     Route: 065

REACTIONS (3)
  - RETINITIS [None]
  - SEPSIS [None]
  - VISION BLURRED [None]
